FAERS Safety Report 17689256 (Version 1)
Quarter: 2020Q2

REPORT INFORMATION
  Report Type: Spontaneous
  Country: US (occurrence: US)
  Receive Date: 20200418
  Receipt Date: 20200418
  Transmission Date: 20200714
  Serious: No
  Sender: FDA-Public Use
  Company Number: None

PATIENT
  Age: 24 Year
  Sex: Female

DRUGS (1)
  1. HUMIRA [Suspect]
     Active Substance: ADALIMUMAB
     Indication: PSORIATIC ARTHROPATHY
     Route: 058
     Dates: start: 20200127

REACTIONS (6)
  - Chest discomfort [None]
  - Nasopharyngitis [None]
  - Hyperhidrosis [None]
  - Influenza [None]
  - Hot flush [None]
  - Pyrexia [None]

NARRATIVE: CASE EVENT DATE: 20200313
